FAERS Safety Report 4452573-0 (Version None)
Quarter: 2004Q3

REPORT INFORMATION
  Report Type: 
  Country: None (occurrence: None)
  Receive Date: 20040913
  Receipt Date: 20040726
  Transmission Date: 20050211
  Serious: No
  Sender: FDA-Public Use
  Company Number: 2004-BP-06262BP(0)

PATIENT
  Sex: Female

DRUGS (9)
  1. SPIRIVA [Suspect]
     Indication: CHRONIC OBSTRUCTIVE AIRWAYS DISEASE
     Dosage: 18 MCG (18 MCG) IH
     Route: 055
     Dates: start: 20040722
  2. TOPOROL [Concomitant]
  3. ENDUR [Concomitant]
  4. PLAVIX [Concomitant]
  5. NORVASC [Concomitant]
  6. THEO-DUR [Concomitant]
  7. PRAVACHOL [Concomitant]
  8. ACETYLSALICYLIC ACID SRT [Concomitant]
  9. LASIX [Concomitant]

REACTIONS (3)
  - DRY MOUTH [None]
  - MIDDLE INSOMNIA [None]
  - RASH [None]
